FAERS Safety Report 10387651 (Version 1)
Quarter: 2014Q1

REPORT INFORMATION
  Report Type: Spontaneous
  Country: US (occurrence: None)
  Receive Date: 20140306
  Receipt Date: 20140306
  Transmission Date: 20141002
  Serious: Yes (Other)
  Sender: FDA-Public Use
  Company Number: 163-21880-13071052

PATIENT
  Age: 68 Year
  Sex: Female
  Weight: 79 kg

DRUGS (4)
  1. REVLIMID [Suspect]
     Indication: PLASMA CELL MYELOMA
     Dosage: 21 IN 21 D
     Route: 048
     Dates: start: 20130607, end: 201307
  2. PAIN MEDS (ANALGESICS) [Concomitant]
  3. ZOMETA (ZOLEDRONIC ACID) [Concomitant]
  4. STOOL SOFTNER (DOCUSATE SODIUM) [Concomitant]

REACTIONS (2)
  - Dysphagia [None]
  - Rash pruritic [None]
